FAERS Safety Report 24938882 (Version 2)
Quarter: 2025Q1

REPORT INFORMATION
  Report Type: Report from Study
  Country: US (occurrence: US)
  Receive Date: 20250206
  Receipt Date: 20250209
  Transmission Date: 20250408
  Serious: Yes (Other)
  Sender: ABBVIE
  Company Number: US-ABBVIE-6110613

PATIENT
  Sex: Female

DRUGS (1)
  1. RINVOQ [Suspect]
     Active Substance: UPADACITINIB
     Indication: Product used for unknown indication
     Route: 048

REACTIONS (12)
  - Lower limb fracture [Unknown]
  - Infection [Recovered/Resolved]
  - Shoulder arthroplasty [Recovered/Resolved]
  - Jaw operation [Recovered/Resolved]
  - Arthrodesis [Unknown]
  - Fall [Unknown]
  - Immunodeficiency [Recovered/Resolved]
  - Pain in jaw [Unknown]
  - Osteoarthritis [Recovered/Resolved]
  - Shoulder arthroplasty [Recovered/Resolved]
  - Shoulder arthroplasty [Recovered/Resolved]
  - Tenoplasty [Unknown]

NARRATIVE: CASE EVENT DATE: 20040601
